FAERS Safety Report 9021936 (Version 1)
Quarter: 2013Q1

REPORT INFORMATION
  Report Type: Spontaneous
  Country: SI (occurrence: SI)
  Receive Date: 20130118
  Receipt Date: 20130118
  Transmission Date: 20140127
  Serious: Yes (Hospitalization)
  Sender: FDA-Public Use
  Company Number: SI-AMGEN-SVNSP2012080618

PATIENT
  Age: 79 Year
  Sex: Female
  Weight: 56 kg

DRUGS (9)
  1. ENBREL [Suspect]
     Indication: RHEUMATOID ARTHRITIS
     Dosage: 50 MG, WEEKLY
     Route: 058
     Dates: start: 20090609, end: 20120912
  2. ENBREL [Suspect]
     Dosage: 50 MG, WEEKLY
     Route: 058
     Dates: start: 20120919, end: 20120926
  3. PROLIA [Concomitant]
     Dosage: 60 MG, AS NEEDED
  4. METHYLPREDNISOLONE [Concomitant]
     Indication: RHEUMATOID ARTHRITIS
     Dosage: 4 MG, 1X/DAY
  5. NEXIUM                             /01479303/ [Concomitant]
     Dosage: 20 MG, 1X/DAY
  6. LORISTA [Concomitant]
     Dosage: 50 MG, 2X/DAY
  7. ADALAT [Concomitant]
     Dosage: 60 MG, 1X/DAY
  8. CALCIUM CARBONATE [Concomitant]
     Dosage: 1 G, 1X/DAY
  9. ALPHA D3 [Concomitant]
     Dosage: 1 UG, 1X/DAY

REACTIONS (2)
  - Photosensitivity reaction [Recovering/Resolving]
  - Eczema [Recovering/Resolving]
